FAERS Safety Report 11552256 (Version 1)
Quarter: 2015Q3

REPORT INFORMATION
  Report Type: Report from Study
  Country: US (occurrence: US)
  Receive Date: 20150925
  Receipt Date: 20150925
  Transmission Date: 20151125
  Serious: Yes (Hospitalization)
  Sender: FDA-Public Use
  Company Number: PHEH2015US006666

PATIENT
  Sex: Female
  Weight: 67.57 kg

DRUGS (1)
  1. GILENYA [Suspect]
     Active Substance: FINGOLIMOD HYDROCHLORIDE
     Indication: MULTIPLE SCLEROSIS
     Dosage: 0.5 MG, QD
     Route: 048
     Dates: start: 20131029

REACTIONS (3)
  - Diverticulitis intestinal haemorrhagic [Recovering/Resolving]
  - Weight decreased [Not Recovered/Not Resolved]
  - Diverticulitis [Recovering/Resolving]
